FAERS Safety Report 11077747 (Version 1)
Quarter: 2015Q2

REPORT INFORMATION
  Report Type: Report from Study
  Country: FR (occurrence: FR)
  Receive Date: 20150430
  Receipt Date: 20150430
  Transmission Date: 20150821
  Serious: Yes (Hospitalization)
  Sender: FDA-Public Use
  Company Number: FR-ROCHE-1162110

PATIENT
  Age: 66 Year
  Sex: Female

DRUGS (2)
  1. RITUXIMAB [Suspect]
     Active Substance: RITUXIMAB
     Route: 042
     Dates: start: 20070214
  2. RITUXIMAB [Suspect]
     Active Substance: RITUXIMAB
     Indication: RHEUMATOID ARTHRITIS
     Dosage: D1
     Route: 042
     Dates: start: 20070131

REACTIONS (4)
  - Cholecystitis acute [Recovered/Resolved]
  - Skin test positive [Not Recovered/Not Resolved]
  - Fatigue [Unknown]
  - Dry mouth [Unknown]

NARRATIVE: CASE EVENT DATE: 20070202
